FAERS Safety Report 4753363-1 (Version None)
Quarter: 2005Q3

REPORT INFORMATION
  Report Type: 
  Country: None (occurrence: None)
  Receive Date: 20050824
  Receipt Date: 20050809
  Transmission Date: 20060218
  Serious: Yes (Hospitalization)
  Sender: FDA-Public Use
  Company Number: DSA_60505_2005

PATIENT
  Age: 4 Year
  Sex: Male
  Weight: 15.8759 kg

DRUGS (3)
  1. DIASTAT [Suspect]
     Indication: CONVULSION
     Dosage: 10 MG PRN RC
  2. LAMICTAL [Suspect]
     Indication: CONVULSION
     Dosage: 125 MG QDAY PO
     Route: 048
     Dates: start: 20050101
  3. LAMICTAL [Suspect]
     Indication: CONVULSION
     Dosage: VAR PO
     Route: 048
     Dates: start: 20050801, end: 20050801

REACTIONS (2)
  - PHARMACEUTICAL PRODUCT COMPLAINT [None]
  - RETINAL DETACHMENT [None]
